FAERS Safety Report 5587160-4 (Version None)
Quarter: 2008Q1

REPORT INFORMATION
  Report Type: 
  Country: None (occurrence: None)
  Receive Date: 20080110
  Receipt Date: 20080102
  Transmission Date: 20080703
  Serious: Yes (Other)
  Sender: FDA-Public Use
  Company Number: PHBS2008FR00463

PATIENT
  Age: 53 Year
  Sex: Male

DRUGS (6)
  1. CARBAMAZEPINE [Suspect]
     Indication: GRAND MAL CONVULSION
  2. PHENYTOIN [Concomitant]
     Indication: GRAND MAL CONVULSION
  3. PHENOBARBITAL TAB [Concomitant]
     Indication: GRAND MAL CONVULSION
  4. CLONAZEPAM [Concomitant]
     Indication: GRAND MAL CONVULSION
  5. VIGABATRIN [Concomitant]
     Indication: GRAND MAL CONVULSION
  6. FELBAMATE [Concomitant]
     Indication: GRAND MAL CONVULSION

REACTIONS (4)
  - AGITATION [None]
  - CONFUSIONAL STATE [None]
  - GRAND MAL CONVULSION [None]
  - PETIT MAL EPILEPSY [None]
